FAERS Safety Report 5984996-2 (Version None)
Quarter: 2008Q4

REPORT INFORMATION
  Report Type: 
  Country: None (occurrence: None)
  Receive Date: 20081208
  Receipt Date: 20081126
  Transmission Date: 20090506
  Serious: Yes (Hospitalization)
  Sender: FDA-Public Use
  Company Number: IT-CELGENEUS-083-C5013-08110131

PATIENT
  Sex: Male
  Weight: 69 kg

DRUGS (11)
  1. REVLIMID [Suspect]
     Indication: MULTIPLE MYELOMA
     Route: 048
     Dates: start: 20080819
  2. REVLIMID [Suspect]
     Route: 048
     Dates: start: 20080916, end: 20080925
  3. MELPHALAN [Suspect]
     Indication: MULTIPLE MYELOMA
     Route: 065
     Dates: start: 20080819
  4. MELPHALAN [Suspect]
     Route: 065
     Dates: start: 20080916, end: 20080919
  5. PREDNISONE TAB [Suspect]
     Indication: MULTIPLE MYELOMA
     Route: 065
     Dates: start: 20080819
  6. PREDNISONE TAB [Suspect]
     Route: 065
     Dates: start: 20080916, end: 20080919
  7. TRAMADOL HCL [Concomitant]
     Route: 048
     Dates: start: 20080902
  8. RAMIPRIL [Concomitant]
     Indication: HYPERTENSION
     Route: 048
     Dates: start: 20080401
  9. LANSOPRAZOLE [Concomitant]
     Indication: PROPHYLAXIS
     Route: 048
     Dates: start: 20080819
  10. ACETYLSALICYLIC ACID SRT [Concomitant]
     Indication: THROMBOSIS PROPHYLAXIS
     Route: 048
     Dates: start: 20080819
  11. CIPROFLOXACIN HCL [Concomitant]
     Route: 048
     Dates: start: 20080923, end: 20080925

REACTIONS (5)
  - BRAIN SCAN ABNORMAL [None]
  - HAEMOGLOBIN DECREASED [None]
  - HEMIPARESIS [None]
  - NEUTROPHIL COUNT INCREASED [None]
  - PYREXIA [None]
